FAERS Safety Report 7054782-3 (Version None)
Quarter: 2010Q4

REPORT INFORMATION
  Report Type: 
  Country: None (occurrence: None)
  Receive Date: 20101020
  Receipt Date: 20101007
  Transmission Date: 20110411
  Serious: Yes (Hospitalization)
  Sender: FDA-Public Use
  Company Number: DE-MYLANLABS-2010S1018858

PATIENT
  Age: 54 Year
  Sex: Male

DRUGS (4)
  1. LOPINAVIR W/RITONAVIR [Interacting]
     Indication: HIV INFECTION
     Route: 065
     Dates: start: 20070501
  2. PHENYTOIN [Suspect]
     Indication: EPILEPSY
     Route: 065
  3. ABACAVIR SULFATE/LAMIVUDINE [Concomitant]
     Indication: HIV INFECTION
     Route: 065
     Dates: start: 20070501
  4. LEVETIRACETAM [Concomitant]
     Indication: EPILEPSY
     Route: 065

REACTIONS (3)
  - DRUG INTERACTION [None]
  - DRUG LEVEL DECREASED [None]
  - STATUS EPILEPTICUS [None]
